FAERS Safety Report 13705842 (Version 1)
Quarter: 2017Q2

REPORT INFORMATION
  Report Type: Spontaneous
  Country: US (occurrence: US)
  Receive Date: 20170630
  Receipt Date: 20170630
  Transmission Date: 20170830
  Serious: Yes (Other)
  Sender: FDA-Public Use
  Company Number: US-HQ SPECIALTY-US-2017INT000220

PATIENT
  Age: 21 Year
  Sex: Male

DRUGS (11)
  1. ETOPOSIDE. [Suspect]
     Active Substance: ETOPOSIDE
     Indication: TESTIS CANCER
     Dosage: 400 MG/M2, UNK
     Route: 042
  2. ETOPOSIDE. [Suspect]
     Active Substance: ETOPOSIDE
     Dosage: 400 MG/M2, UNK
     Route: 042
  3. IFOSFAMIDE. [Suspect]
     Active Substance: IFOSFAMIDE
     Dosage: 2000 MG/M IV+ MESNA SUPPORT, EVERY 14 DAYS
     Route: 042
  4. CARBOPLATIN. [Suspect]
     Active Substance: CARBOPLATIN
     Dosage: AUC = 8, DAYS 1-3
     Route: 042
  5. CARBOPLATIN. [Suspect]
     Active Substance: CARBOPLATIN
     Indication: TESTIS CANCER
     Dosage: AUC = 8, DAYS 1-3
     Route: 042
  6. PACLITAXEL. [Suspect]
     Active Substance: PACLITAXEL
     Dosage: 250 MG/M2 IV OVER 24 HOURS,EVERY 14 DAYS
     Route: 042
  7. ETOPOSIDE. [Suspect]
     Active Substance: ETOPOSIDE
     Dosage: 400 MG/M2, UNK
     Route: 042
  8. CARBOPLATIN. [Suspect]
     Active Substance: CARBOPLATIN
     Dosage: AUC = 8, DAYS 1-3
     Route: 042
  9. PACLITAXEL. [Suspect]
     Active Substance: PACLITAXEL
     Indication: TESTIS CANCER
     Dosage: 250 MG/M2 IV OVER 24 HOURS, EVERY 14 DAYS
  10. GRANULOCYTE COLONY STIMULATING FACTOR [Concomitant]
     Active Substance: GRANULOCYTE COLONY-STIMULATING FACTOR NOS
     Indication: TESTIS CANCER
     Dosage: 10 MCG/KG/DAY
  11. IFOSFAMIDE. [Suspect]
     Active Substance: IFOSFAMIDE
     Indication: TESTIS CANCER
     Dosage: 2000 MG/M IV+ MESNA SUPPORT, EVERY 14 DAYS
     Route: 042

REACTIONS (1)
  - Rhabdomyolysis [Recovered/Resolved]
